FAERS Safety Report 25755154 (Version 2)
Quarter: 2025Q4

REPORT INFORMATION
  Report Type: Spontaneous
  Country: US (occurrence: US)
  Receive Date: 20250903
  Receipt Date: 20251009
  Transmission Date: 20260119
  Serious: Yes (Hospitalization, Other)
  Sender: IPCA
  Company Number: US-IPCA LABORATORIES LIMITED-IPC-2025-US-002363

PATIENT

DRUGS (4)
  1. ESCITALOPRAM [Interacting]
     Active Substance: ESCITALOPRAM OXALATE
     Indication: Major depression
     Dosage: 20 MILLIGRAM, QD
     Route: 065
  2. ESCITALOPRAM [Interacting]
     Active Substance: ESCITALOPRAM OXALATE
     Dosage: 5 MILLIGRAM, QD
     Route: 065
  3. BUPROPION HYDROCHLORIDE [Interacting]
     Active Substance: BUPROPION HYDROCHLORIDE
     Indication: Product used for unknown indication
     Dosage: 105 MILLIGRAM
     Route: 065
  4. BUPROPION\DEXTROMETHORPHAN [Interacting]
     Active Substance: BUPROPION\DEXTROMETHORPHAN
     Indication: Product used for unknown indication
     Dosage: 45+105 MILLIGRAM QD
     Route: 065

REACTIONS (11)
  - Hypersomnia [Recovering/Resolving]
  - Myoclonus [Recovering/Resolving]
  - Hyperreflexia [Recovering/Resolving]
  - Asterixis [Recovering/Resolving]
  - Hallucination [Recovering/Resolving]
  - Postural tremor [Recovering/Resolving]
  - Mental status changes [Recovering/Resolving]
  - Delirium [Recovering/Resolving]
  - Encephalopathy [Recovering/Resolving]
  - Serotonin syndrome [Recovering/Resolving]
  - Drug interaction [Unknown]
